FAERS Safety Report 4844632-5 (Version None)
Quarter: 2005Q4

REPORT INFORMATION
  Report Type: 
  Country: None (occurrence: None)
  Receive Date: 20051129
  Receipt Date: 20051114
  Transmission Date: 20060501
  Serious: Yes (Other)
  Sender: FDA-Public Use
  Company Number: US016356

PATIENT
  Age: 66 Year
  Sex: Male

DRUGS (1)
  1. TRISENOX [Suspect]
     Indication: ACUTE PROMYELOCYTIC LEUKAEMIA
     Dates: start: 20051003, end: 20051106

REACTIONS (1)
  - WHITE BLOOD CELL COUNT DECREASED [None]
